FAERS Safety Report 6542778-7 (Version None)
Quarter: 2010Q1

REPORT INFORMATION
  Report Type: 
  Country: None (occurrence: None)
  Receive Date: 20100114
  Receipt Date: 20100104
  Transmission Date: 20100710
  Serious: Yes (Other)
  Sender: FDA-Public Use
  Company Number: JPI-P-009470

PATIENT
  Age: 34 Year
  Sex: Male

DRUGS (7)
  1. XYREM [Suspect]
     Indication: FATIGUE
     Dosage: 7 GM (3.5 GM, 2 IN 1 D), ORAL; 8 GM (4 GM, 2 IN 1 D), ORAL
     Route: 048
     Dates: start: 20091231, end: 20100101
  2. XYREM [Suspect]
     Indication: INSOMNIA
     Dosage: 7 GM (3.5 GM, 2 IN 1 D), ORAL; 8 GM (4 GM, 2 IN 1 D), ORAL
     Route: 048
     Dates: start: 20091231, end: 20100101
  3. XYREM [Suspect]
     Indication: FATIGUE
     Dosage: 7 GM (3.5 GM, 2 IN 1 D), ORAL; 8 GM (4 GM, 2 IN 1 D), ORAL
     Route: 048
     Dates: start: 20100102, end: 20100103
  4. XYREM [Suspect]
     Indication: INSOMNIA
     Dosage: 7 GM (3.5 GM, 2 IN 1 D), ORAL; 8 GM (4 GM, 2 IN 1 D), ORAL
     Route: 048
     Dates: start: 20100102, end: 20100103
  5. DULOXETINE [Concomitant]
  6. LORATADINE [Concomitant]
  7. AMPHETAMINE AND DEXTROAMPHETAMINE [Concomitant]

REACTIONS (9)
  - ANXIETY [None]
  - COLD SWEAT [None]
  - CONDITION AGGRAVATED [None]
  - CONVULSION [None]
  - DIZZINESS [None]
  - FALL [None]
  - NERVOUSNESS [None]
  - POOR QUALITY SLEEP [None]
  - TREMOR [None]
